FAERS Safety Report 8064862-1 (Version None)
Quarter: 2012Q1

REPORT INFORMATION
  Report Type: 
  Country: None (occurrence: None)
  Receive Date: 20120124
  Receipt Date: 20120112
  Transmission Date: 20120608
  Serious: No
  Sender: FDA-Public Use
  Company Number: US-BIOGENIDEC-2011BI048759

PATIENT
  Sex: Male

DRUGS (2)
  1. USTIKINUMAB [Concomitant]
     Indication: CROHN'S DISEASE
  2. TYSABRI [Suspect]
     Indication: CROHN'S DISEASE
     Route: 042
     Dates: start: 20110523, end: 20110815

REACTIONS (2)
  - DRUG INEFFECTIVE [None]
  - CROHN'S DISEASE [None]
